FAERS Safety Report 14267031 (Version 2)
Quarter: 2018Q1

REPORT INFORMATION
  Report Type: Spontaneous
  Country: US (occurrence: US)
  Receive Date: 20171211
  Receipt Date: 20180112
  Transmission Date: 20180508
  Serious: No
  Sender: FDA-Public Use
  Company Number: US-PFIZER INC-2017523204

PATIENT
  Age: 54 Year
  Sex: Female
  Weight: 61.23 kg

DRUGS (5)
  1. PREMARIN [Suspect]
     Active Substance: ESTROGENS, CONJUGATED
     Indication: VULVOVAGINAL DRYNESS
     Dosage: MONDAY AND THURSDAY 1 GRAM DOSE VIA APPLICATOR
     Dates: start: 20171120, end: 20171123
  2. PREMARIN [Suspect]
     Active Substance: ESTROGENS, CONJUGATED
     Indication: ATROPHIC VULVOVAGINITIS
     Dosage: 1 G, 2X/WEEK (1GRAM SPLIT + TOPICALLY + INTERNALLY 2X/WKLY)
     Route: 067
     Dates: start: 20171114, end: 20171201
  3. FLONASE [Concomitant]
     Active Substance: FLUTICASONE PROPIONATE
     Indication: HYPERSENSITIVITY
     Dosage: 1 SPRAY PER NOSTRIL ONCE A DAY
     Route: 045
  4. RHINOCORT [Concomitant]
     Active Substance: BUDESONIDE
     Dosage: UNK
  5. CITALOPRAM [Concomitant]
     Active Substance: CITALOPRAM HYDROBROMIDE
     Indication: DEPRESSION
     Dosage: 20 MG, 1X/DAY
     Route: 048

REACTIONS (5)
  - Product use issue [Unknown]
  - Oral pruritus [Recovering/Resolving]
  - Tongue disorder [Recovered/Resolved]
  - Dry mouth [Recovered/Resolved]
  - Oral disorder [Recovering/Resolving]

NARRATIVE: CASE EVENT DATE: 20171120
